FAERS Safety Report 6369252-5 (Version None)
Quarter: 2009Q3

REPORT INFORMATION
  Report Type: 
  Country: None (occurrence: None)
  Receive Date: 20090916
  Receipt Date: 20090908
  Transmission Date: 20100115
  Serious: Yes (Other)
  Sender: FDA-Public Use
  Company Number: ADR20272009

PATIENT
  Age: 8 Month

DRUGS (2)
  1. SERTRALINE HCL [Suspect]
     Dosage: TRANSMAMMARY
     Route: 063
  2. FLUOXETINE [Concomitant]

REACTIONS (3)
  - DRUG EXPOSURE DURING PREGNANCY [None]
  - DRUG EXPOSURE VIA BREAST MILK [None]
  - TREMOR [None]
